FAERS Safety Report 7425040-X (Version None)
Quarter: 2011Q2

REPORT INFORMATION
  Report Type: 
  Country: None (occurrence: None)
  Receive Date: 20110420
  Receipt Date: 20110407
  Transmission Date: 20111010
  Serious: Yes (Other)
  Sender: FDA-Public Use
  Company Number: US-AMGEN-USASP2011007668

PATIENT
  Age: 44 Year
  Sex: Female
  Weight: 86 kg

DRUGS (4)
  1. ENBREL [Suspect]
     Dosage: 50 MG, UNK
     Route: 058
     Dates: end: 20101001
  2. CELLCEPT [Suspect]
     Indication: RENAL TRANSPLANT
     Dosage: 500 MG, 3X/DAY
  3. PROGRAF [Suspect]
     Indication: RENAL TRANSPLANT
     Dosage: 1 G, 3X/DAY
  4. ENBREL [Suspect]
     Indication: RHEUMATOID ARTHRITIS
     Dosage: 25 MG, UNK
     Route: 058
     Dates: start: 20061201

REACTIONS (1)
  - BREAST CANCER FEMALE [None]
